FAERS Safety Report 12497864 (Version 6)
Quarter: 2018Q2

REPORT INFORMATION
  Report Type: Spontaneous
  Country: GB (occurrence: GB)
  Receive Date: 20160625
  Receipt Date: 20180422
  Transmission Date: 20180711
  Serious: Yes (Other)
  Sender: FDA-Public Use
  Company Number: GB-APOTEX-2016AP009444

PATIENT
  Sex: Female

DRUGS (7)
  1. PAROXETINE. [Suspect]
     Active Substance: PAROXETINE
     Indication: PRODUCT USED FOR UNKNOWN INDICATION
     Dosage: UNK
     Route: 065
     Dates: start: 19971117, end: 20060725
  2. PAXIL [Suspect]
     Active Substance: PAROXETINE HYDROCHLORIDE
     Indication: PRODUCT USED FOR UNKNOWN INDICATION
     Dosage: 20 MG, QD
     Route: 065
     Dates: start: 19971117, end: 20051029
  3. PROZAC [Concomitant]
     Active Substance: FLUOXETINE HYDROCHLORIDE
     Indication: PRODUCT USED FOR UNKNOWN INDICATION
     Dates: start: 20021014
  4. CIPRAMIL [Concomitant]
     Active Substance: CITALOPRAM HYDROBROMIDE
     Indication: PRODUCT USED FOR UNKNOWN INDICATION
     Dates: start: 20030811
  5. PAXIL [Suspect]
     Active Substance: PAROXETINE HYDROCHLORIDE
     Indication: PRODUCT USED FOR UNKNOWN INDICATION
     Dosage: UNK
     Route: 065
     Dates: start: 200008, end: 200305
  6. PAROXETINE ORAL SOLUTION [Suspect]
     Active Substance: PAROXETINE
     Indication: PRODUCT USED FOR UNKNOWN INDICATION
     Dosage: 10 MG/ML, QD
     Route: 065
     Dates: start: 20021118, end: 20040425
  7. DIAZEPAM. [Concomitant]
     Active Substance: DIAZEPAM
     Indication: PRODUCT USED FOR UNKNOWN INDICATION
     Dosage: UNK
     Dates: start: 20030811

REACTIONS (62)
  - Pyrexia [Unknown]
  - Thinking abnormal [Unknown]
  - Feeling of despair [Unknown]
  - Feeling abnormal [Unknown]
  - Affect lability [Unknown]
  - Pain in extremity [Unknown]
  - Malaise [Unknown]
  - Dyskinesia [Unknown]
  - Chills [Unknown]
  - Cognitive disorder [Unknown]
  - Aggression [Unknown]
  - Sleep disorder [Unknown]
  - Decreased appetite [Unknown]
  - Irritability [Unknown]
  - Extrapyramidal disorder [Unknown]
  - Abnormal dreams [Unknown]
  - Dependence [Unknown]
  - Malaise [Unknown]
  - Dizziness [Unknown]
  - Nausea [Unknown]
  - Contusion [Unknown]
  - Feeling abnormal [Unknown]
  - Regurgitation [Unknown]
  - Panic reaction [Unknown]
  - Headache [Unknown]
  - Tremor [Unknown]
  - Muscle spasms [Unknown]
  - Epistaxis [Unknown]
  - Asthenia [Unknown]
  - Antisocial personality disorder [Unknown]
  - Weight increased [Unknown]
  - Clumsiness [Unknown]
  - Vomiting [Unknown]
  - Malaise [Unknown]
  - Mental impairment [Unknown]
  - Seizure [Unknown]
  - Restlessness [Unknown]
  - Apathy [Unknown]
  - Feeling drunk [Unknown]
  - Depression [Unknown]
  - Lethargy [Unknown]
  - Nightmare [Unknown]
  - Anger [Unknown]
  - Muscle twitching [Unknown]
  - Arthralgia [Unknown]
  - Hypoaesthesia oral [Unknown]
  - Suicidal ideation [Unknown]
  - Withdrawal syndrome [Recovered/Resolved]
  - Emotional distress [Unknown]
  - Disturbance in attention [Unknown]
  - Restless legs syndrome [Unknown]
  - Vision blurred [Unknown]
  - Hypervigilance [Unknown]
  - Weight decreased [Unknown]
  - Urinary retention [Unknown]
  - Depressed level of consciousness [Unknown]
  - Confusional state [Unknown]
  - Visual impairment [Unknown]
  - Influenza like illness [Unknown]
  - Anxiety [Unknown]
  - Paraesthesia [Unknown]
  - Affective disorder [Unknown]

NARRATIVE: CASE EVENT DATE: 199907
